FAERS Safety Report 11943543 (Version 2)
Quarter: 2016Q1

REPORT INFORMATION
  Report Type: Spontaneous
  Country: US (occurrence: US)
  Receive Date: 20160125
  Receipt Date: 20160127
  Transmission Date: 20160526
  Serious: No
  Sender: FDA-Public Use
  Company Number: US-009507513-1601USA007654

PATIENT
  Age: 17 Year
  Sex: Female
  Weight: 68.27 kg

DRUGS (1)
  1. NEXPLANON [Suspect]
     Active Substance: ETONOGESTREL
     Indication: CONTRACEPTION
     Dosage: EVERY 3 YEARS, INSERTED IN LEFT ARM
     Route: 059
     Dates: start: 20151228

REACTIONS (4)
  - Back pain [Unknown]
  - Headache [Unknown]
  - Dyspnoea [Unknown]
  - Acne [Unknown]

NARRATIVE: CASE EVENT DATE: 20160104
